FAERS Safety Report 17009389 (Version 1)
Quarter: 2019Q4

REPORT INFORMATION
  Report Type: Spontaneous
  Country: US (occurrence: US)
  Receive Date: 20191108
  Receipt Date: 20191108
  Transmission Date: 20200122
  Serious: Yes (Life-Threatening, Hospitalization)
  Sender: FDA-Public Use
  Company Number: US-MYLANLABS-2019M1106063

PATIENT
  Age: 40 Year
  Sex: Male

DRUGS (6)
  1. PIPERACILLIN/TAZOBACTAM [Suspect]
     Active Substance: PIPERACILLIN SODIUM\TAZOBACTAM SODIUM
     Indication: PNEUMONIA STREPTOCOCCAL
     Route: 065
  2. ALBENDAZOLE. [Suspect]
     Active Substance: ALBENDAZOLE
     Indication: STRONGYLOIDIASIS
     Route: 065
  3. DEXAMETHASONE. [Suspect]
     Active Substance: DEXAMETHASONE
     Indication: IMMUNOSUPPRESSANT DRUG THERAPY
     Route: 065
  4. VANCOMYCIN [Suspect]
     Active Substance: VANCOMYCIN
     Indication: PNEUMONIA STREPTOCOCCAL
     Route: 065
  5. IVERMECTIN. [Suspect]
     Active Substance: IVERMECTIN
     Indication: STRONGYLOIDIASIS
     Route: 065
  6. LEVETIRACETAM. [Suspect]
     Active Substance: LEVETIRACETAM
     Indication: SEIZURE
     Route: 065

REACTIONS (14)
  - Varicella zoster virus infection [Recovering/Resolving]
  - Strongyloidiasis [Recovering/Resolving]
  - Meningitis pneumococcal [Recovering/Resolving]
  - Acute respiratory distress syndrome [Recovering/Resolving]
  - Herpes simplex meningitis [Recovering/Resolving]
  - Meningitis viral [Recovering/Resolving]
  - Inappropriate antidiuretic hormone secretion [Recovering/Resolving]
  - Seizure [Recovering/Resolving]
  - Small intestinal obstruction [Recovering/Resolving]
  - Respiratory failure [Recovering/Resolving]
  - Cytomegalovirus infection [Recovering/Resolving]
  - Condition aggravated [Recovering/Resolving]
  - Drug ineffective [Unknown]
  - Hyponatraemia [Recovering/Resolving]
